FAERS Safety Report 18076943 (Version 2)
Quarter: 2020Q3

REPORT INFORMATION
  Report Type: Spontaneous
  Country: US (occurrence: US)
  Receive Date: 20200728
  Receipt Date: 20200806
  Transmission Date: 20201103
  Serious: No
  Sender: FDA-Public Use
  Company Number: US-TEVA-2020-US-1806264

PATIENT
  Sex: Female

DRUGS (1)
  1. BUPRENORPHINE TEVA [Suspect]
     Active Substance: BUPRENORPHINE
     Dosage: 20 MCG/HR
     Route: 065
     Dates: start: 20200715

REACTIONS (5)
  - Product physical issue [Unknown]
  - Product adhesion issue [Unknown]
  - Product substitution issue [Unknown]
  - Hyperhidrosis [Unknown]
  - Hot flush [Unknown]

NARRATIVE: CASE EVENT DATE: 202007
